FAERS Safety Report 13020622 (Version 3)
Quarter: 2017Q2

REPORT INFORMATION
  Report Type: Report from Study
  Country: US (occurrence: US)
  Receive Date: 20161212
  Receipt Date: 20170412
  Transmission Date: 20170830
  Serious: Yes (Death, Hospitalization)
  Sender: FDA-Public Use
  Company Number: US-BAUSCH-BL-2016-031145

PATIENT
  Age: 59 Year
  Sex: Male

DRUGS (1)
  1. XENAZINE [Suspect]
     Active Substance: TETRABENAZINE
     Indication: HUNTINGTON^S DISEASE
     Route: 048
     Dates: start: 20130814

REACTIONS (4)
  - Hospitalisation [Unknown]
  - Urinary tract infection [Unknown]
  - Sepsis [Unknown]
  - Death [Fatal]

NARRATIVE: CASE EVENT DATE: 20170208
